FAERS Safety Report 4692594-6 (Version None)
Quarter: 2005Q2

REPORT INFORMATION
  Report Type: 
  Country: None (occurrence: None)
  Receive Date: 20050617
  Receipt Date: 20050613
  Transmission Date: 20051028
  Serious: Yes (Hospitalization)
  Sender: FDA-Public Use
  Company Number: BE-MERCK-0506BEL00021

PATIENT
  Age: 42 Year
  Sex: Male
  Weight: 60 kg

DRUGS (4)
  1. PROPECIA [Suspect]
     Indication: ALOPECIA
     Route: 048
     Dates: start: 20000201, end: 20010601
  2. PROPECIA [Suspect]
     Route: 048
     Dates: start: 20030401, end: 20050101
  3. CLORAZEPATE DIPOTASSIUM [Concomitant]
     Route: 048
     Dates: start: 20010401, end: 20050601
  4. MINOXIDIL [Concomitant]
     Route: 061

REACTIONS (1)
  - BREAST NEOPLASM [None]
